FAERS Safety Report 24229826 (Version 1)
Quarter: 2024Q3

REPORT INFORMATION
  Report Type: Spontaneous
  Country: US (occurrence: None)
  Receive Date: 20240820
  Receipt Date: 20240820
  Transmission Date: 20241017
  Serious: Yes (Hospitalization)
  Sender: Public
  Company Number: None

PATIENT
  Age: 65 Year
  Sex: Male
  Weight: 101.5 kg

DRUGS (3)
  1. DARATUMUMAB\HYALURONIDASE-FIHJ [Suspect]
     Active Substance: DARATUMUMAB\HYALURONIDASE-FIHJ
     Dates: end: 20240711
  2. LENALIDOMIDE [Suspect]
     Active Substance: LENALIDOMIDE
     Dates: end: 20240711
  3. VELCADE [Suspect]
     Active Substance: BORTEZOMIB
     Dates: end: 20230301

REACTIONS (6)
  - Tachycardia [None]
  - Aortic stenosis [None]
  - Ventricular tachycardia [None]
  - Ventricular tachycardia [None]
  - Hypertrophic cardiomyopathy [None]
  - Therapy cessation [None]

NARRATIVE: CASE EVENT DATE: 20240808
